FAERS Safety Report 16169054 (Version 5)
Quarter: 2019Q2

REPORT INFORMATION
  Report Type: Report from Study
  Country: US (occurrence: US)
  Receive Date: 20190408
  Receipt Date: 20190607
  Transmission Date: 20190711
  Serious: Yes (Other)
  Sender: FDA-Public Use
  Company Number: US-KYOWAKIRIN-2019BKK005152

PATIENT

DRUGS (1)
  1. POTELIGEO [Suspect]
     Active Substance: MOGAMULIZUMAB-KPKC
     Indication: CUTANEOUS T-CELL LYMPHOMA
     Dosage: INFUSION OVER AN HOUR, DOSE UNKNOWN, RECEIVED A TOTAL OF THREE INFUSIONS ONCE A WEEK
     Route: 065
     Dates: start: 20190311

REACTIONS (2)
  - Cutaneous T-cell lymphoma recurrent [Recovering/Resolving]
  - Drug ineffective [Recovered/Resolved]

NARRATIVE: CASE EVENT DATE: 201903
